FAERS Safety Report 19282333 (Version 2)
Quarter: 2021Q3

REPORT INFORMATION
  Report Type: Spontaneous
  Country: IL (occurrence: IL)
  Receive Date: 20210521
  Receipt Date: 20210708
  Transmission Date: 20211014
  Serious: Yes (Other)
  Sender: FDA-Public Use
  Company Number: IL-NOVOPROD-813479

PATIENT
  Age: 22 Year
  Sex: Female
  Weight: 95 kg

DRUGS (2)
  1. OZEMPIC [Suspect]
     Active Substance: SEMAGLUTIDE
     Indication: OBESITY
     Dosage: 0.25 MG
     Route: 065
  2. DIANA [Concomitant]
     Indication: POLYCYSTIC OVARIES
     Dosage: UNK
     Route: 065

REACTIONS (4)
  - Nasopharyngitis [Recovered/Resolved]
  - Off label use [Unknown]
  - Liver function test increased [Recovering/Resolving]
  - Cough [Recovered/Resolved]
